FAERS Safety Report 6016538-X (Version None)
Quarter: 2008Q4

REPORT INFORMATION
  Report Type: 
  Country: None (occurrence: None)
  Receive Date: 20081222
  Receipt Date: 20081216
  Transmission Date: 20090506
  Serious: No
  Sender: FDA-Public Use
  Company Number: US-JNJFOC-20081005298

PATIENT
  Sex: Female
  Weight: 117.94 kg

DRUGS (5)
  1. RISPERDAL [Suspect]
     Indication: DELUSIONAL DISORDER, UNSPECIFIED TYPE
     Route: 048
  2. RISPERDAL [Suspect]
     Indication: SCHIZOPHRENIA
     Route: 048
  3. INVEGA [Suspect]
     Indication: DELUSIONAL DISORDER, UNSPECIFIED TYPE
  4. INVEGA [Suspect]
     Indication: SCHIZOPHRENIA
     Dosage: BETWEEN 3 MG AND 6 MG DAILY
  5. PROPRANOLOL [Concomitant]
     Indication: ANXIETY
     Route: 065

REACTIONS (2)
  - DYSPHONIA [None]
  - LARYNGITIS [None]
